FAERS Safety Report 7867711 (Version 4)
Quarter: 2013Q3

REPORT INFORMATION
  Report Type: Report from Study
  Country: FR (occurrence: FR)
  Receive Date: 20110323
  Receipt Date: 20130731
  Transmission Date: 20140515
  Serious: Yes (Hospitalization)
  Sender: FDA-Public Use
  Company Number: FR-ROCHE-766526

PATIENT
  Age: 63 Year
  Sex: Female
  Weight: 66 kg

DRUGS (3)
  1. BEVACIZUMAB [Suspect]
     Indication: NON-SMALL CELL LUNG CANCER
     Dosage: FOUR COURSE RECEIVED.
     Route: 042
     Dates: start: 20101118, end: 20110119
  2. CISPLATIN [Suspect]
     Indication: NON-SMALL CELL LUNG CANCER
     Dosage: 4 COURSES RECEIVED.
     Route: 065
     Dates: start: 20101118
  3. PACLITAXEL [Suspect]
     Indication: NON-SMALL CELL LUNG CANCER
     Dosage: 4 COURSES RECEIVED.
     Route: 065
     Dates: start: 20101118

REACTIONS (2)
  - Pulmonary embolism [Not Recovered/Not Resolved]
  - Phlebitis [Not Recovered/Not Resolved]
